FAERS Safety Report 7113488-2 (Version None)
Quarter: 2010Q4

REPORT INFORMATION
  Report Type: 
  Country: None (occurrence: None)
  Receive Date: 20101119
  Receipt Date: 20101110
  Transmission Date: 20110411
  Serious: Yes (Death, Other)
  Sender: FDA-Public Use
  Company Number: US-PFIZER INC-2010146915

PATIENT
  Sex: Male

DRUGS (3)
  1. CORDARONE [Suspect]
     Dosage: UNK
     Route: 048
     Dates: start: 20030101
  2. PACERONE [Suspect]
     Dosage: UNK
     Route: 048
     Dates: start: 20030101
  3. AMIODARONE [Suspect]
     Dosage: UNK
     Route: 048
     Dates: start: 20030101

REACTIONS (1)
  - PULMONARY TOXICITY [None]
